FAERS Safety Report 10616300 (Version 1)
Quarter: 2014Q4

REPORT INFORMATION
  Report Type: Spontaneous
  Country: US (occurrence: US)
  Receive Date: 20141201
  Receipt Date: 20141201
  Transmission Date: 20150529
  Serious: Yes (Other)
  Sender: FDA-Public Use
  Company Number: US-PFIZER INC-2014325025

PATIENT
  Age: 55 Year
  Sex: Female

DRUGS (2)
  1. OSPHENA [Interacting]
     Active Substance: OSPEMIFENE
     Indication: DYSPAREUNIA
     Dosage: UNK
     Dates: start: 20141006, end: 20141027
  2. DUAVEE [Suspect]
     Active Substance: BAZEDOXIFENE ACETATE\ESTROGENS, CONJUGATED
     Indication: HOT FLUSH
     Dosage: UNK
     Dates: start: 20140825

REACTIONS (6)
  - Vulvovaginal swelling [Recovering/Resolving]
  - Labelled drug-drug interaction medication error [Unknown]
  - Vaginal haemorrhage [Recovering/Resolving]
  - Vulvovaginal burning sensation [Recovering/Resolving]
  - Vulvovaginal erythema [Recovering/Resolving]
  - Vulval haemorrhage [Recovering/Resolving]

NARRATIVE: CASE EVENT DATE: 20141006
